FAERS Safety Report 5892375-1 (Version None)
Quarter: 2008Q3

REPORT INFORMATION
  Report Type: 
  Country: None (occurrence: None)
  Receive Date: 20080918
  Receipt Date: 20080918
  Transmission Date: 20090109
  Serious: Yes (Hospitalization)
  Sender: FDA-Public Use
  Company Number: None

PATIENT
  Sex: Male

DRUGS (6)
  1. IBUPROFEN [Suspect]
     Indication: BACK PAIN
     Dosage: 800MG THREE TIMES DAILY PO
     Route: 048
     Dates: start: 20080701, end: 20080910
  2. ASPIRIN [Suspect]
     Indication: PROPHYLAXIS
     Dosage: 81MG DAILY PO
     Route: 048
  3. FLUOROURACIL [Concomitant]
  4. FUROSEMIDE [Concomitant]
  5. BEVACIZUMAB [Concomitant]
  6. LANSOPRAZOLE [Concomitant]

REACTIONS (2)
  - GASTRITIS [None]
  - OCCULT BLOOD POSITIVE [None]
